FAERS Safety Report 4830787-5 (Version None)
Quarter: 2005Q4

REPORT INFORMATION
  Report Type: 
  Country: None (occurrence: None)
  Receive Date: 20051117
  Receipt Date: 20050810
  Transmission Date: 20060501
  Serious: Yes (Hospitalization, Disabling)
  Sender: FDA-Public Use
  Company Number: US-MERCK-0508USA01983

PATIENT
  Age: 51 Year
  Sex: Male
  Weight: 95 kg

DRUGS (12)
  1. VIOXX [Suspect]
     Indication: PAIN IN EXTREMITY
     Route: 048
     Dates: start: 20010201, end: 20020501
  2. VIOXX [Suspect]
     Route: 048
     Dates: start: 20020101, end: 20031001
  3. VIOXX [Suspect]
     Route: 048
     Dates: start: 20040901, end: 20041014
  4. LIPITOR [Concomitant]
     Indication: BLOOD CHOLESTEROL INCREASED
     Route: 065
     Dates: start: 20000101
  5. DARVOCET-N 100 [Concomitant]
     Route: 065
  6. ALLEGRA [Concomitant]
     Indication: HYPERSENSITIVITY
     Route: 065
  7. AXID [Concomitant]
     Indication: DYSPEPSIA
     Route: 065
  8. CEFZIL [Concomitant]
     Route: 065
  9. ZITHROMAX [Concomitant]
     Route: 065
  10. AMOCICILLIIN [Concomitant]
     Route: 065
  11. PROMETHAZINE [Concomitant]
     Route: 065
  12. REXAN (ACYCLOVIR) [Concomitant]
     Route: 065

REACTIONS (9)
  - CHEST PAIN [None]
  - CORONARY ARTERY OCCLUSION [None]
  - DEPRESSION [None]
  - DYSPEPSIA [None]
  - HYPERLIPIDAEMIA [None]
  - HYPERTENSION [None]
  - MYOCARDIAL INFARCTION [None]
  - NERVOUSNESS [None]
  - TRANSIENT ISCHAEMIC ATTACK [None]
